FAERS Safety Report 9038711 (Version 1)
Quarter: 2013Q1

REPORT INFORMATION
  Report Type: Report from Study
  Country: US (occurrence: US)
  Receive Date: 20130129
  Receipt Date: 20130129
  Transmission Date: 20140127
  Serious: No
  Sender: FDA-Public Use
  Company Number: US-ABBOTT-12P-163-0934930-00

PATIENT
  Age: 54 Year
  Sex: Female

DRUGS (13)
  1. HUMIRA 40 MG/0.8 ML PEN [Suspect]
     Indication: CROHN^S DISEASE
     Dates: start: 201204
  2. CELEBREX [Concomitant]
     Indication: PRODUCT USED FOR UNKNOWN INDICATION
  3. ACYCLOVIR [Concomitant]
     Indication: ORAL HERPES
  4. EFFEXOR [Concomitant]
     Indication: PRODUCT USED FOR UNKNOWN INDICATION
     Dosage: 150MG DAILY
  5. ALLEGRA [Concomitant]
     Indication: SEASONAL ALLERGY
     Dosage: 180MG DAILY
  6. MERCAPTOPURINE [Concomitant]
     Indication: PRODUCT USED FOR UNKNOWN INDICATION
     Dosage: 50MG DAILY
  7. SIMVASTATIN [Concomitant]
     Indication: BLOOD CHOLESTEROL INCREASED
     Dosage: 20MG DAILY
  8. TRAZODONE [Concomitant]
     Indication: INSOMNIA
     Dosage: 1/3 OF 50MG
  9. PREMPRO [Concomitant]
     Indication: HOT FLUSH
  10. MVI [Concomitant]
     Indication: PRODUCT USED FOR UNKNOWN INDICATION
  11. FLONASE SPRAY [Concomitant]
     Indication: HYPERSENSITIVITY
  12. VIT D3 [Concomitant]
     Indication: PRODUCT USED FOR UNKNOWN INDICATION
     Dosage: 1000IU DAILY
  13. SUPER B COMPLEX [Concomitant]
     Indication: PRODUCT USED FOR UNKNOWN INDICATION
     Dosage: DAILY

REACTIONS (3)
  - Injection site papule [Not Recovered/Not Resolved]
  - Injection site erythema [Not Recovered/Not Resolved]
  - Injection site pruritus [Not Recovered/Not Resolved]
